FAERS Safety Report 12183949 (Version 2)
Quarter: 2016Q2

REPORT INFORMATION
  Report Type: Spontaneous
  Country: GB (occurrence: GB)
  Receive Date: 20160316
  Receipt Date: 20160401
  Transmission Date: 20160815
  Serious: Yes (Disabling, Other)
  Sender: FDA-Public Use
  Company Number: GB-GLAXOSMITHKLINE-GB2016035423

PATIENT
  Age: 46 Year
  Sex: Female
  Weight: 83.1 kg

DRUGS (27)
  1. SODIUM CHLORIDE. [Suspect]
     Active Substance: SODIUM CHLORIDE
     Dosage: 250 ML, ONCE
     Route: 040
     Dates: start: 20110120, end: 20110120
  2. PACLITAXEL. [Suspect]
     Active Substance: PACLITAXEL
     Dosage: 100 MG, ONCE
     Route: 042
     Dates: start: 20110223, end: 20110223
  3. RANITIDINE. [Suspect]
     Active Substance: RANITIDINE
     Indication: PRODUCT USED FOR UNKNOWN INDICATION
     Dosage: 50 MG, UNK
     Route: 040
     Dates: start: 20101208
  4. SODIUM CHLORIDE. [Suspect]
     Active Substance: SODIUM CHLORIDE
     Dosage: 250 ML, ONCE
     Route: 040
     Dates: start: 20101215, end: 20101215
  5. PACLITAXEL. [Suspect]
     Active Substance: PACLITAXEL
     Dosage: 157 MG, ONCE
     Route: 042
     Dates: start: 20101215, end: 20101215
  6. PACLITAXEL. [Suspect]
     Active Substance: PACLITAXEL
     Dosage: 157 MG, ONCE
     Route: 042
     Dates: start: 20110202, end: 20110202
  7. DEXAMETHASONE. [Suspect]
     Active Substance: DEXAMETHASONE
     Indication: PRODUCT USED FOR UNKNOWN INDICATION
     Dosage: 8 MG, UNK
     Route: 042
     Dates: start: 20101208
  8. SODIUM CHLORIDE. [Suspect]
     Active Substance: SODIUM CHLORIDE
     Dosage: 100 ML, ONCE
     Route: 040
     Dates: start: 20101208
  9. SODIUM CHLORIDE. [Suspect]
     Active Substance: SODIUM CHLORIDE
     Dosage: 250 ML, ONCE
     Route: 040
     Dates: start: 20110119, end: 20110119
  10. SODIUM CHLORIDE. [Suspect]
     Active Substance: SODIUM CHLORIDE
     Dosage: 250 ML, ONCE
     Route: 040
     Dates: start: 20110202, end: 20110202
  11. SODIUM CHLORIDE. [Suspect]
     Active Substance: SODIUM CHLORIDE
     Dosage: 250 ML, ONCE
     Route: 040
     Dates: start: 20101222, end: 20101222
  12. SODIUM CHLORIDE. [Suspect]
     Active Substance: SODIUM CHLORIDE
     Dosage: 250 ML, ONCE
     Route: 040
     Dates: start: 20101229, end: 20101229
  13. PACLITAXEL. [Suspect]
     Active Substance: PACLITAXEL
     Dosage: 157 MG, ONCE
     Route: 042
     Dates: start: 20101229, end: 20101229
  14. PACLITAXEL. [Suspect]
     Active Substance: PACLITAXEL
     Dosage: 157 MG, ONCE
     Route: 042
     Dates: start: 20110119, end: 20110119
  15. SODIUM CHLORIDE. [Suspect]
     Active Substance: SODIUM CHLORIDE
     Dosage: 250 ML, ONCE
     Route: 040
     Dates: start: 20110215, end: 20110215
  16. SODIUM CHLORIDE. [Suspect]
     Active Substance: SODIUM CHLORIDE
     Dosage: 250 ML, ONCE
     Route: 040
     Dates: start: 20110223, end: 20110223
  17. SODIUM CHLORIDE. [Suspect]
     Active Substance: SODIUM CHLORIDE
     Dosage: 250 ML, ONCE
     Route: 040
  18. PACLITAXEL. [Suspect]
     Active Substance: PACLITAXEL
     Dosage: 157 MG, ONCE
     Route: 042
     Dates: start: 20110120, end: 20110120
  19. SODIUM CHLORIDE. [Suspect]
     Active Substance: SODIUM CHLORIDE
     Indication: BREAST CANCER
     Dosage: 250 ML, ONCE
     Route: 040
     Dates: start: 20101208, end: 20101208
  20. SODIUM CHLORIDE. [Suspect]
     Active Substance: SODIUM CHLORIDE
     Dosage: 250 ML, ONCE
     Route: 040
     Dates: start: 20110105, end: 20110105
  21. PACLITAXEL. [Suspect]
     Active Substance: PACLITAXEL
     Indication: BREAST CANCER
     Dosage: 157 MG, ONCE
     Route: 042
     Dates: start: 20101208, end: 20101208
  22. PACLITAXEL. [Suspect]
     Active Substance: PACLITAXEL
     Dosage: 157 MG, ONCE
     Route: 042
     Dates: start: 20101222, end: 20101222
  23. PACLITAXEL. [Suspect]
     Active Substance: PACLITAXEL
     Dosage: 157 MG, ONCE
     Route: 042
     Dates: start: 20110105, end: 20110105
  24. PACLITAXEL. [Suspect]
     Active Substance: PACLITAXEL
     Dosage: 157 MG, ONCE
     Route: 042
     Dates: start: 20110112, end: 20110112
  25. PACLITAXEL. [Suspect]
     Active Substance: PACLITAXEL
     Dosage: 157 MG, ONCE
     Route: 042
     Dates: start: 20110215, end: 20110215
  26. CHLORPHENIRAMINE MALEATE. [Suspect]
     Active Substance: CHLORPHENIRAMINE MALEATE
     Indication: PRODUCT USED FOR UNKNOWN INDICATION
     Dosage: 10 MG, UNK
     Route: 040
     Dates: start: 20101208
  27. ALOXI [Suspect]
     Active Substance: PALONOSETRON HYDROCHLORIDE
     Indication: PRODUCT USED FOR UNKNOWN INDICATION
     Dosage: 250 MG, UNK
     Route: 040
     Dates: start: 20101208

REACTIONS (1)
  - Neuropathy peripheral [Not Recovered/Not Resolved]

NARRATIVE: CASE EVENT DATE: 201102
